FAERS Safety Report 16516361 (Version 1)
Quarter: 2019Q3

REPORT INFORMATION
  Report Type: Spontaneous
  Country: US (occurrence: US)
  Receive Date: 20190522
  Receipt Date: 20190522
  Transmission Date: 20191004
  Serious: No
  Sender: FDA-Public Use
  Company Number: None

PATIENT
  Age: 50 Year
  Sex: Female

DRUGS (1)
  1. GLATOPA [Suspect]
     Active Substance: GLATIRAMER ACETATE
     Dates: start: 201805, end: 201905

REACTIONS (6)
  - Amnesia [None]
  - Anxiety [None]
  - Tremor [None]
  - Seizure [None]
  - Back pain [None]
  - Depression [None]

NARRATIVE: CASE EVENT DATE: 20190522
